FAERS Safety Report 5601990-1 (Version None)
Quarter: 2008Q1

REPORT INFORMATION
  Report Type: 
  Country: None (occurrence: None)
  Receive Date: 20080118
  Receipt Date: 20080104
  Transmission Date: 20080703
  Serious: Yes (Death, Hospitalization)
  Sender: FDA-Public Use
  Company Number: CHNY2008FR00541

PATIENT
  Age: 64 Year
  Sex: Female

DRUGS (9)
  1. SCOPODERM TTS (NCH)(HYOSCINE HYDROBROMIDE) TRANS-THERAPEUTIC-SYSTEM [Suspect]
     Indication: DYSPHAGIA
     Dosage: 1 MG, Q72H, TRANSDERMAL
     Route: 062
     Dates: start: 20070514, end: 20070610
  2. MICROPAKINE(SODIUM VALPROATE) [Suspect]
     Dosage: 500 MG, QD
  3. DEPAKENE [Suspect]
     Dosage: 6 DF, QD
  4. TAZOCILLINE(PIPERACILLIN SODIUM, TAZOBACTAM SODIUM) [Suspect]
     Dosage: INTRAVENOUS
     Route: 042
     Dates: start: 20070530, end: 20070606
  5. CIPROFLOXACIN [Suspect]
     Dosage: INTRAVENOUS
     Route: 042
     Dates: start: 20070530, end: 20070606
  6. PANTOPRAZOLE SODIUM [Suspect]
     Dosage: INTRAVENOUS
     Route: 042
  7. URBANYL (CLOBAZAM) [Concomitant]
  8. PRIMAXIN [Concomitant]
  9. VANCOMYCIN [Concomitant]

REACTIONS (9)
  - COMA [None]
  - DRUG TOXICITY [None]
  - LUNG DISORDER [None]
  - MULTI-ORGAN FAILURE [None]
  - OVERDOSE [None]
  - PANCYTOPENIA [None]
  - PETECHIAE [None]
  - PSEUDOMONAS INFECTION [None]
  - SEPSIS [None]
